FAERS Safety Report 5399074-3 (Version None)
Quarter: 2007Q3

REPORT INFORMATION
  Report Type: 
  Country: None (occurrence: None)
  Receive Date: 20070727
  Receipt Date: 20061205
  Transmission Date: 20080115
  Serious: Yes (Hospitalization)
  Sender: FDA-Public Use
  Company Number: A0603305A

PATIENT
  Age: 36 Year
  Sex: Female
  Weight: 90.9 kg

DRUGS (3)
  1. LOTRONEX [Suspect]
     Indication: IRRITABLE BOWEL SYNDROME
     Route: 048
     Dates: start: 20001018, end: 20001201
  2. CELEBREX [Concomitant]
  3. IRON SUPPLEMENT [Concomitant]

REACTIONS (8)
  - ABDOMINAL DISTENSION [None]
  - ABDOMINAL PAIN LOWER [None]
  - CONSTIPATION [None]
  - DIARRHOEA [None]
  - FLATULENCE [None]
  - HAEMORRHOIDS [None]
  - MUSCLE SPASMS [None]
  - OCCULT BLOOD POSITIVE [None]
